FAERS Safety Report 6674412-X (Version None)
Quarter: 2010Q2

REPORT INFORMATION
  Report Type: 
  Country: None (occurrence: None)
  Receive Date: 20100409
  Receipt Date: 20100330
  Transmission Date: 20101027
  Serious: Yes (Death)
  Sender: FDA-Public Use
  Company Number: CN-BAYER-201020124GPV

PATIENT
  Age: 45 Year
  Sex: Male

DRUGS (1)
  1. ASPIRIN [Suspect]
     Indication: HEADACHE
     Dosage: TOTAL DAILY DOSE: 1 G

REACTIONS (11)
  - ABDOMINAL DISCOMFORT [None]
  - COMA [None]
  - CONVULSION [None]
  - DISSEMINATED INTRAVASCULAR COAGULATION [None]
  - ECCHYMOSIS [None]
  - HAEMATEMESIS [None]
  - HAEMOLYTIC URAEMIC SYNDROME [None]
  - MELAENA [None]
  - NAUSEA [None]
  - RESPIRATORY FAILURE [None]
  - REYE'S SYNDROME [None]
